FAERS Safety Report 8857626 (Version 1)
Quarter: 2012Q4

REPORT INFORMATION
  Report Type: 
  Country: US (occurrence: US)
  Receive Date: 20121024
  Receipt Date: 20121024
  Transmission Date: 20130627
  Serious: No
  Sender: FDA-Public Use
  Company Number: US-TEVA-360635USA

PATIENT
  Sex: Female

DRUGS (3)
  1. PROAIR HFA [Suspect]
     Dosage: unknown
     Route: 055
     Dates: end: 201208
  2. SYMBICORT [Concomitant]
  3. BYSTOLIC [Concomitant]

REACTIONS (2)
  - Incorrect dose administered [Unknown]
  - Dyspnoea [Unknown]
